FAERS Safety Report 7034335-3 (Version None)
Quarter: 2010Q4

REPORT INFORMATION
  Report Type: 
  Country: None (occurrence: None)
  Receive Date: 20101008
  Receipt Date: 20100924
  Transmission Date: 20110411
  Serious: Yes (Other)
  Sender: FDA-Public Use
  Company Number: PHHY2010JP49442

PATIENT
  Sex: Male
  Weight: 43 kg

DRUGS (15)
  1. DIOVAN [Suspect]
     Indication: HYPERTENSION
     Dosage: 80 MG DAILY
     Route: 048
     Dates: start: 20100617, end: 20100623
  2. DIOVAN [Suspect]
     Dosage: 80 MG DAILY
     Route: 048
     Dates: start: 20100625, end: 20100721
  3. VALPROATE SODIUM [Suspect]
     Indication: EPILEPSY
     Dosage: 3 G DAILY
     Dates: start: 20100624, end: 20100630
  4. FAMOTIDINE [Suspect]
     Indication: GASTRIC ULCER
     Dosage: 0.4G DAILY
     Dates: start: 20100617, end: 20100623
  5. PHENOBARBITAL [Suspect]
     Indication: EPILEPSY
     Dosage: 1G DAILY
     Dates: start: 20100617, end: 20100623
  6. GLUCONSAN K [Suspect]
     Dosage: UNK
     Dates: start: 20100619
  7. INCREMIN [Concomitant]
     Indication: IRON DEFICIENCY ANAEMIA
     Dosage: 15 ML
     Dates: start: 20100619
  8. URIEF [Concomitant]
     Indication: DYSURIA
     Dosage: 2DF
     Route: 048
     Dates: start: 20100630
  9. FOLIAMIN [Concomitant]
     Indication: FOLATE DEFICIENCY
     Dosage: 3DF
     Dates: start: 20100630
  10. RENIVEZE [Concomitant]
     Indication: HYPERTENSION
     Dosage: 1DF
     Dates: start: 20100722
  11. AMARYL [Concomitant]
     Indication: DIABETES MELLITUS
     Dosage: 2DF
     Dates: start: 20100802
  12. BENIDIPINE HYDROCHLORIDE [Concomitant]
     Dosage: 2 MG DAILY
  13. SODIUM ALGINATE [Concomitant]
     Dosage: 5MG
  14. AMLODIPINE [Concomitant]
     Dosage: 5MG
     Dates: end: 20100621
  15. BESACOLIN [Concomitant]
     Dosage: UNK
     Dates: start: 20100630

REACTIONS (1)
  - LIVER FUNCTION TEST ABNORMAL [None]
